FAERS Safety Report 7815361-0 (Version None)
Quarter: 2011Q4

REPORT INFORMATION
  Report Type: 
  Country: None (occurrence: None)
  Receive Date: 20111014
  Receipt Date: 20111003
  Transmission Date: 20120403
  Serious: Yes (Hospitalization, Disabling)
  Sender: FDA-Public Use
  Company Number: US-MERCK-1105USA01489

PATIENT
  Age: 50 Year
  Sex: Female
  Weight: 77 kg

DRUGS (8)
  1. TOPAMAX [Concomitant]
     Indication: MIGRAINE
     Route: 065
     Dates: start: 20060101
  2. FLOVENT [Concomitant]
     Indication: ASTHMA
     Route: 065
     Dates: end: 20110101
  3. FLUDROCORTISONE [Concomitant]
     Indication: ADDISON'S DISEASE
     Route: 065
     Dates: start: 20060101
  4. FOSAMAX [Suspect]
     Indication: OSTEOPOROSIS
     Route: 048
     Dates: start: 20070101, end: 20100801
  5. PANTOPRAZOLE [Concomitant]
     Indication: GASTROOESOPHAGEAL REFLUX DISEASE
     Route: 065
     Dates: start: 20010101
  6. PREDNISOLONE [Concomitant]
     Indication: ADDISON'S DISEASE
     Route: 065
     Dates: start: 20060101
  7. PREMARIN [Concomitant]
     Indication: HORMONE REPLACEMENT THERAPY
     Route: 065
     Dates: start: 19890101
  8. FROVA [Concomitant]
     Indication: MIGRAINE
     Route: 065
     Dates: start: 20030101

REACTIONS (68)
  - GINGIVITIS [None]
  - FACE INJURY [None]
  - ESCHERICHIA URINARY TRACT INFECTION [None]
  - DENTAL CARIES [None]
  - TONGUE ATROPHY [None]
  - URTICARIA [None]
  - MUSCLE STRAIN [None]
  - IRRITABLE BOWEL SYNDROME [None]
  - MUSCULOSKELETAL CHEST PAIN [None]
  - ARTHROPATHY [None]
  - DIVERTICULITIS [None]
  - TONGUE GEOGRAPHIC [None]
  - UPPER RESPIRATORY TRACT INFECTION [None]
  - LACTIC ACIDOSIS [None]
  - IRON DEFICIENCY ANAEMIA [None]
  - ACUTE RESPIRATORY FAILURE [None]
  - ASPERGILLOSIS [None]
  - PRODUCT QUALITY ISSUE [None]
  - DELIRIUM [None]
  - OBESITY [None]
  - SEPTIC SHOCK [None]
  - COMA [None]
  - HEAD INJURY [None]
  - CONJUNCTIVITIS [None]
  - HIP ARTHROPLASTY [None]
  - ABSCESS [None]
  - OSTEONECROSIS OF JAW [None]
  - GASTRIC DISORDER [None]
  - GLOSSITIS [None]
  - TREMOR [None]
  - GINGIVAL PAIN [None]
  - IRON DEFICIENCY [None]
  - HYPERVIGILANCE [None]
  - COSTOCHONDRITIS [None]
  - ARTHRITIS [None]
  - TOOTHACHE [None]
  - FUNGAL INFECTION [None]
  - FALL [None]
  - ABDOMINAL ADHESIONS [None]
  - ANXIETY [None]
  - ASTHMA [None]
  - INTERVERTEBRAL DISC DEGENERATION [None]
  - SPEECH DISORDER [None]
  - HYPOXIA [None]
  - EXPOSED BONE IN JAW [None]
  - ABDOMINAL PAIN [None]
  - GASTROENTERITIS VIRAL [None]
  - ANASTOMOTIC ULCER [None]
  - GASTROINTESTINAL DISORDER [None]
  - PNEUMONIA [None]
  - DIVERTICULUM [None]
  - HERPES ZOSTER [None]
  - ULCER HAEMORRHAGE [None]
  - OEDEMA [None]
  - NAUSEA [None]
  - MUCOSAL INFLAMMATION [None]
  - MULTIPLE INJURIES [None]
  - ADRENOCORTICAL INSUFFICIENCY ACUTE [None]
  - HYPOVENTILATION [None]
  - HYPOKALAEMIA [None]
  - CERVICAL SPINAL STENOSIS [None]
  - PEPTIC ULCER [None]
  - PAIN [None]
  - LACERATION [None]
  - INSOMNIA [None]
  - CANDIDIASIS [None]
  - COCCYDYNIA [None]
  - PARKINSONISM [None]
